FAERS Safety Report 10034890 (Version 1)
Quarter: 2014Q1

REPORT INFORMATION
  Report Type: Spontaneous
  Country: US (occurrence: None)
  Receive Date: 20140306
  Receipt Date: 20140306
  Transmission Date: 20141002
  Serious: Yes (Other)
  Sender: FDA-Public Use
  Company Number: 163-21880-13104907

PATIENT
  Age: 63 Year
  Sex: Female
  Weight: 99.79 kg

DRUGS (12)
  1. REVLIMID (LENALIDOMIDE) (15  MILLIGRAM, CAPSULES) [Suspect]
     Indication: PLASMA CELL MYELOMA
     Route: 048
     Dates: start: 20121207
  2. ALLOPURINOL [Concomitant]
  3. ASA (ACETYLSALICYLIC ACID) [Concomitant]
  4. NORVASC (AMLODIPINE BESILATE) [Concomitant]
  5. LIPITOR (ATORVASTATIN) [Concomitant]
  6. SYNTHROID (LEVOTHYROXINE SODIUM) [Concomitant]
  7. ACYCLOVIR [Concomitant]
  8. ZANTAC (RANITIDINE HYDROCHLORIDE) [Concomitant]
  9. POTASSIUM [Concomitant]
  10. VITAMIN D (ERGOCALCIFEROL) [Concomitant]
  11. DEXAMETHASONE [Concomitant]
  12. LOPRESSOR (METOPROLOL TARTRATE) [Concomitant]

REACTIONS (2)
  - Immunoglobulins increased [None]
  - No therapeutic response [None]
